FAERS Safety Report 9763181 (Version 1)
Quarter: 2013Q4

REPORT INFORMATION
  Report Type: Spontaneous
  Country: US (occurrence: US)
  Receive Date: 20131216
  Receipt Date: 20131216
  Transmission Date: 20140711
  Serious: No
  Sender: FDA-Public Use
  Company Number: US-BIOGENIDEC-2013BI106346

PATIENT
  Age: 36 Year
  Sex: Female

DRUGS (23)
  1. TECFIDERA [Suspect]
     Indication: MULTIPLE SCLEROSIS
     Route: 048
     Dates: start: 20130920, end: 20130927
  2. TECFIDERA [Suspect]
     Indication: MULTIPLE SCLEROSIS
     Route: 048
     Dates: start: 20130928, end: 20131025
  3. MAGNESIUM [Concomitant]
  4. ACYCLOVIR [Concomitant]
  5. BACLOFEN [Concomitant]
  6. CALCIUM [Concomitant]
  7. DILTIAZEM HCL [Concomitant]
  8. COLACE [Concomitant]
  9. ESTRADIOL [Concomitant]
  10. FENTANYL PATCH [Concomitant]
  11. MECLIZINE [Concomitant]
  12. MEDICAL MARIJUANA [Concomitant]
  13. NORCO [Concomitant]
  14. OMEGA 3 [Concomitant]
  15. PRO AIR [Concomitant]
  16. PROMETHAZINE [Concomitant]
  17. RISPERIDONE [Concomitant]
  18. SENNA [Concomitant]
  19. SPIRONOLACTONE [Concomitant]
  20. VALIUM [Concomitant]
  21. VITAMIN B [Concomitant]
  22. VITAMIN C [Concomitant]
  23. VITAMIN D [Concomitant]

REACTIONS (3)
  - Dehydration [Unknown]
  - Pain [Unknown]
  - Nausea [Unknown]
